FAERS Safety Report 6039366-8 (Version None)
Quarter: 2009Q1

REPORT INFORMATION
  Report Type: 
  Country: None (occurrence: None)
  Receive Date: 20090114
  Receipt Date: 20090105
  Transmission Date: 20090719
  Serious: Yes (Hospitalization)
  Sender: FDA-Public Use
  Company Number: 2009JP000051

PATIENT
  Age: 76 Year
  Sex: Female
  Weight: 67 kg

DRUGS (2)
  1. VESICARE [Suspect]
     Indication: HYPERTONIC BLADDER
     Dosage: 5 MG, UID/QD, ORAL
     Route: 048
     Dates: start: 20080221, end: 20080516
  2. EBRANTIL (URAPIDIL) [Concomitant]

REACTIONS (2)
  - PYELONEPHRITIS [None]
  - RESIDUAL URINE VOLUME INCREASED [None]
